FAERS Safety Report 19818913 (Version 2)
Quarter: 2022Q2

REPORT INFORMATION
  Report Type: Spontaneous
  Country: US (occurrence: US)
  Receive Date: 20210912
  Receipt Date: 20220615
  Transmission Date: 20220721
  Serious: Yes (Other)
  Sender: FDA-Public Use
  Company Number: US-GILEAD-2021-0547360

PATIENT
  Sex: Female
  Weight: 78.912 kg

DRUGS (14)
  1. TRUVADA [Suspect]
     Active Substance: EMTRICITABINE\TENOFOVIR DISOPROXIL FUMARATE
     Indication: HIV infection
     Dosage: UNK
     Route: 048
     Dates: start: 2009, end: 2019
  2. DESCOVY [Concomitant]
     Active Substance: EMTRICITABINE\TENOFOVIR ALAFENAMIDE FUMARATE
  3. SYMTUZA [Concomitant]
     Active Substance: COBICISTAT\DARUNAVIR\EMTRICITABINE\TENOFOVIR ALAFENAMIDE
  4. LEXIVA [Concomitant]
     Active Substance: FOSAMPRENAVIR CALCIUM
  5. NORVIR [Concomitant]
     Active Substance: RITONAVIR
  6. SUSTIVA [Concomitant]
     Active Substance: EFAVIRENZ
  7. VIDEX [Concomitant]
     Active Substance: DIDANOSINE
  8. VIRACEPT [Concomitant]
     Active Substance: NELFINAVIR MESYLATE
  9. LYRICA [Concomitant]
     Active Substance: PREGABALIN
  10. OMEPRAZOLE [Concomitant]
     Active Substance: OMEPRAZOLE
  11. CLONAZEPAM [Concomitant]
     Active Substance: CLONAZEPAM
  12. AMBIEN [Concomitant]
     Active Substance: ZOLPIDEM TARTRATE
  13. ARIPIPRAZOLE [Concomitant]
     Active Substance: ARIPIPRAZOLE
  14. DOXEPIN [Concomitant]
     Active Substance: DOXEPIN

REACTIONS (9)
  - Chronic kidney disease [Not Recovered/Not Resolved]
  - Exercise tolerance decreased [Not Recovered/Not Resolved]
  - Gait disturbance [Not Recovered/Not Resolved]
  - Mobility decreased [Not Recovered/Not Resolved]
  - Emotional distress [Not Recovered/Not Resolved]
  - Anhedonia [Not Recovered/Not Resolved]
  - Anxiety [Not Recovered/Not Resolved]
  - Depression [Not Recovered/Not Resolved]
  - Pain [Not Recovered/Not Resolved]

NARRATIVE: CASE EVENT DATE: 20170101
